FAERS Safety Report 4294457-7 (Version None)
Quarter: 2004Q1

REPORT INFORMATION
  Report Type: 
  Country: None (occurrence: None)
  Receive Date: 20040211
  Receipt Date: 20040204
  Transmission Date: 20041129
  Serious: Yes (Death)
  Sender: FDA-Public Use
  Company Number: 200410402GDS

PATIENT
  Age: 78 Year
  Sex: Male

DRUGS (2)
  1. FLOCIPRIN (CIPROFLOXACIN HYDROCHLORIDE) [Suspect]
     Indication: BRONCHITIS CHRONIC
     Dosage: 500 MG, BID, ORAL
     Route: 048
     Dates: start: 20040106, end: 20040111
  2. AMIODARONE [Concomitant]

REACTIONS (1)
  - TOXIC EPIDERMAL NECROLYSIS [None]
